FAERS Safety Report 20501954 (Version 1)
Quarter: 2022Q1

REPORT INFORMATION
  Report Type: Spontaneous
  Country: US (occurrence: US)
  Receive Date: 20220222
  Receipt Date: 20220222
  Transmission Date: 20220424
  Serious: Yes (Other)
  Sender: FDA-Public Use
  Company Number: US-AMGEN-USASP2022027178

PATIENT

DRUGS (2)
  1. PROCRIT [Suspect]
     Active Substance: ERYTHROPOIETIN
     Indication: Product used for unknown indication
     Dosage: UNK, QWK (600 IU/KG)
     Route: 058
  2. NIFEREX [IRON POLYSACCHARIDE COMPLEX] [Concomitant]
     Dosage: 200 MILLIGRAM, QD

REACTIONS (26)
  - Arrhythmia [Unknown]
  - Thrombosis [Unknown]
  - Myocardial infarction [Unknown]
  - Cerebrovascular accident [Unknown]
  - Hypokalaemia [Unknown]
  - Dyspepsia [Unknown]
  - Skin disorder [Unknown]
  - Mental disorder [Unknown]
  - Adverse event [Unknown]
  - Heart rate abnormal [Unknown]
  - Respiratory disorder [Unknown]
  - Gastrointestinal disorder [Unknown]
  - Constipation [Unknown]
  - Malnutrition [Unknown]
  - Deep vein thrombosis [Unknown]
  - Metabolic disorder [Unknown]
  - Cardiovascular disorder [Unknown]
  - Nervous system disorder [Unknown]
  - Headache [Unknown]
  - Dizziness [Unknown]
  - Pruritus [Unknown]
  - Insomnia [Unknown]
  - Nausea [Unknown]
  - Hypertension [Unknown]
  - Pyrexia [Unknown]
  - Vomiting [Unknown]
